FAERS Safety Report 19521123 (Version 2)
Quarter: 2021Q3

REPORT INFORMATION
  Report Type: Report from Study
  Country: GB (occurrence: GB)
  Receive Date: 20210712
  Receipt Date: 20210802
  Transmission Date: 20211014
  Serious: Yes (Hospitalization)
  Sender: FDA-Public Use
  Company Number: GB-SAMSUNG BIOEPIS-SB-2021-05116

PATIENT
  Age: 61 Year
  Sex: Female

DRUGS (2)
  1. BENEPALI [Suspect]
     Active Substance: ETANERCEPT
     Indication: RHEUMATOID ARTHRITIS
     Route: 058
     Dates: start: 20210127
  2. HYDROXYCHLOROQUINE [Concomitant]
     Active Substance: HYDROXYCHLOROQUINE
     Indication: PRODUCT USED FOR UNKNOWN INDICATION
     Dosage: UNKNOWN
     Route: 065

REACTIONS (12)
  - Rheumatoid arthritis [Unknown]
  - Dyspnoea [Unknown]
  - Chest pain [Unknown]
  - Lethargy [Unknown]
  - Dysphonia [Unknown]
  - Fatigue [Unknown]
  - Blood potassium decreased [Unknown]
  - Ill-defined disorder [Unknown]
  - Chest discomfort [Unknown]
  - Drug ineffective [Unknown]
  - Sleep disorder [Unknown]
  - Weight bearing difficulty [Unknown]
